FAERS Safety Report 24928402 (Version 1)
Quarter: 2025Q1

REPORT INFORMATION
  Report Type: Spontaneous
  Country: FI (occurrence: FI)
  Receive Date: 20250205
  Receipt Date: 20250205
  Transmission Date: 20250408
  Serious: Yes (Disabling)
  Sender: BAUSCH AND LOMB
  Company Number: None

PATIENT
  Age: 47 Year
  Sex: Female

DRUGS (2)
  1. LOCOID [Suspect]
     Active Substance: HYDROCORTISONE BUTYRATE
     Indication: Dermatitis atopic
     Route: 065
     Dates: start: 2016, end: 202401
  2. BETAMETHASONE VALERATE [Suspect]
     Active Substance: BETAMETHASONE VALERATE
     Indication: Hand dermatitis
     Dosage: FOR SKIN ONCE A DAY IF NECESSARY / ONCE A DAY AS NECESSARY ON THE SKIN
     Route: 003
     Dates: start: 2014, end: 202401

REACTIONS (6)
  - Drug tolerance [Not Recovered/Not Resolved]
  - Face oedema [Not Recovered/Not Resolved]
  - Swelling of eyelid [Not Recovered/Not Resolved]
  - Steroid dependence [Not Recovered/Not Resolved]
  - Topical steroid withdrawal reaction [Not Recovered/Not Resolved]
  - Rash [Not Recovered/Not Resolved]

NARRATIVE: CASE EVENT DATE: 20220101
